FAERS Safety Report 16170899 (Version 6)
Quarter: 2021Q3

REPORT INFORMATION
  Report Type: Spontaneous
  Country: GB (occurrence: GB)
  Receive Date: 20190408
  Receipt Date: 20210915
  Transmission Date: 20211014
  Serious: Yes (Life-Threatening, Hospitalization, Congenital Anomaly, Other)
  Sender: FDA-Public Use
  Company Number: GB-PERRIGO-19GB004359

PATIENT

DRUGS (34)
  1. PARACETAMOL [Suspect]
     Active Substance: ACETAMINOPHEN
     Indication: BACK DISORDER
     Dosage: UNK UNK, QID (UP TO 4TIMES A DAY, STAGGERED PARACET OVERDOSE(UNINTENTIONAL) OVER WEEKS AND DAYS PRIO
     Route: 064
  2. COCODAMOL [Suspect]
     Active Substance: ACETAMINOPHEN\CODEINE PHOSPHATE
     Dosage: UNK (ABUSE, OVERDOSE)
     Route: 064
  3. PARACETAMOL CODEINE PHOSPHATE HEMIHYDRATE [Suspect]
     Active Substance: ACETAMINOPHEN\CODEINE PHOSPHATE
     Indication: BACK DISORDER
     Dosage: UNK UNK, QD
     Route: 064
  4. PERFALGAN [Suspect]
     Active Substance: ACETAMINOPHEN
     Indication: PELVIC PAIN
     Dosage: UNK
     Route: 064
  5. PERFALGAN [Suspect]
     Active Substance: ACETAMINOPHEN
     Indication: PRODUCT USED FOR UNKNOWN INDICATION
     Dosage: UNK, 4X/DAY (QID)
     Route: 064
  6. METRONIDAZOLE. [Concomitant]
     Active Substance: METRONIDAZOLE
     Indication: FOETAL EXPOSURE DURING PREGNANCY
  7. CODEINE [Suspect]
     Active Substance: CODEINE
     Indication: FOETAL EXPOSURE DURING PREGNANCY
     Dosage: UNK
     Route: 064
  8. CODEINE [Suspect]
     Active Substance: CODEINE
     Indication: PELVIC PAIN
     Dosage: UNK, UNK, TABLET
     Route: 064
  9. PARACETAMOL [Suspect]
     Active Substance: ACETAMINOPHEN
     Indication: FOETAL EXPOSURE DURING PREGNANCY
     Dosage: UNK, MATERNAL DOSE: UNKNOWN/MATERNAL DOSE: 4 OT, QD
     Route: 064
  10. PARACETAMOL [Suspect]
     Active Substance: ACETAMINOPHEN
     Dosage: UNK (STAGGERED PARACETAMOL OVERDOSE(UNINTENTIONAL) OVER WEEKS AND DAYS PRIOR TO DELIVERY)
     Route: 064
  11. PERFALGAN [Suspect]
     Active Substance: ACETAMINOPHEN
     Indication: FOETAL EXPOSURE DURING PREGNANCY
     Dosage: UNK (PARENT: INDICATION: PELVIC PAIN) STAGGERED PARACETAMOL OVERDOSE(UNINTENTIONAL) OVER WEEKS AND D
     Route: 064
  12. ENOXAPARIN [Concomitant]
     Active Substance: ENOXAPARIN
     Indication: FOETAL EXPOSURE DURING PREGNANCY
     Dosage: UNK
     Route: 064
  13. FLUOXETINE [Concomitant]
     Active Substance: FLUOXETINE HYDROCHLORIDE
     Indication: PRODUCT USED FOR UNKNOWN INDICATION
     Route: 064
  14. PARACETAMOL CODEINE PHOSPHATE HEMIHYDRATE [Suspect]
     Active Substance: ACETAMINOPHEN\CODEINE PHOSPHATE
     Indication: FOETAL EXPOSURE DURING PREGNANCY
     Dosage: UNK, 4X/DAY (QID)
     Route: 064
  15. CEFRADINE [Concomitant]
     Active Substance: CEPHRADINE
     Indication: FOETAL EXPOSURE DURING PREGNANCY
  16. MORPHINE HYDROCHLORIDE [Concomitant]
     Active Substance: MORPHINE HYDROCHLORIDE
     Indication: PRODUCT USED FOR UNKNOWN INDICATION
     Route: 064
  17. PARACETAMOL [Suspect]
     Active Substance: ACETAMINOPHEN
     Dosage: UNK
     Route: 064
  18. COCODAMOL [Suspect]
     Active Substance: ACETAMINOPHEN\CODEINE PHOSPHATE
     Indication: BACK DISORDER
     Dosage: UNK, QD (ABUSE, OVERDOSE)
     Route: 064
  19. COCODAMOL [Suspect]
     Active Substance: ACETAMINOPHEN\CODEINE PHOSPHATE
     Indication: FOETAL EXPOSURE DURING PREGNANCY
     Dosage: UNK (ABUSE, OVERDOSE)
     Route: 064
  20. COCODAMOL [Suspect]
     Active Substance: ACETAMINOPHEN\CODEINE PHOSPHATE
     Dosage: UNK (ABUSE, OVERDOSE)
     Route: 064
  21. ENOXAPARIN [Concomitant]
     Active Substance: ENOXAPARIN
     Indication: PRODUCT USED FOR UNKNOWN INDICATION
     Dosage: UNK
     Route: 064
  22. PARACETAMOL [Suspect]
     Active Substance: ACETAMINOPHEN
     Dosage: UNK
     Route: 064
  23. COCODAMOL [Suspect]
     Active Substance: ACETAMINOPHEN\CODEINE PHOSPHATE
     Indication: PELVIC PAIN
     Dosage: UNK UNK, QID (UP TO 4TIMES A DAY, STAGGERED PARACETA, OVERDOSE(UNINTENTIONAL) OVER WEEKS AND DAYS PR
     Route: 064
  24. PERFALGAN [Suspect]
     Active Substance: ACETAMINOPHEN
     Indication: BACK DISORDER
     Dosage: UNK, QID (UP TO FOUR TIMES A DAY, PARENT: INDICATION: BACK DISORDER)
     Route: 064
  25. FLUOXETINE [Concomitant]
     Active Substance: FLUOXETINE HYDROCHLORIDE
     Indication: FOETAL EXPOSURE DURING PREGNANCY
     Dosage: UNK
     Route: 064
  26. PARACETAMOL [Suspect]
     Active Substance: ACETAMINOPHEN
     Dosage: UNK
     Route: 064
  27. CEFRADINE [Concomitant]
     Active Substance: CEPHRADINE
     Indication: PRODUCT USED FOR UNKNOWN INDICATION
  28. METRONIDAZOLE. [Concomitant]
     Active Substance: METRONIDAZOLE
     Indication: PYELONEPHRITIS
     Route: 064
  29. PARACETAMOL [Suspect]
     Active Substance: ACETAMINOPHEN
     Indication: PELVIC PAIN
     Route: 064
  30. COCODAMOL [Suspect]
     Active Substance: ACETAMINOPHEN\CODEINE PHOSPHATE
     Dosage: UNK (ABUSE,OVERDOSE/STAGGERED PARACETAMOL OVERDOSE(UNINTENTIONAL) OVER WEEKS AND DAYS PRIOR TO DELIV
     Route: 064
  31. PARACETAMOL CODEINE PHOSPHATE HEMIHYDRATE [Suspect]
     Active Substance: ACETAMINOPHEN\CODEINE PHOSPHATE
     Indication: PELVIC PAIN
     Dosage: 1 DF, QID (4X/DAY (QID)
     Route: 064
  32. CEFRADINE [Concomitant]
     Active Substance: CEPHRADINE
     Indication: PYELONEPHRITIS
     Route: 064
  33. METRONIDAZOLE. [Concomitant]
     Active Substance: METRONIDAZOLE
     Indication: PRODUCT USED FOR UNKNOWN INDICATION
  34. CODEINE [Suspect]
     Active Substance: CODEINE
     Indication: BACK DISORDER
     Dosage: UNK
     Route: 064

REACTIONS (27)
  - Overdose [Unknown]
  - Incubator therapy [Unknown]
  - Hepatic enzyme increased [Recovered/Resolved]
  - Foetal exposure during pregnancy [Recovered/Resolved with Sequelae]
  - Tremor [Unknown]
  - Gingival discomfort [Unknown]
  - Developmental delay [Not Recovered/Not Resolved]
  - Hepatic function abnormal [Recovered/Resolved]
  - Malaise [Unknown]
  - Heart rate irregular [Unknown]
  - Foetal monitoring abnormal [Unknown]
  - Dependence [Unknown]
  - Gait inability [Unknown]
  - Respiratory distress [Recovered/Resolved]
  - Liver function test abnormal [Recovered/Resolved]
  - Jaundice neonatal [Recovered/Resolved]
  - Aphasia [Unknown]
  - Language disorder [Unknown]
  - Hepatotoxicity [Recovered/Resolved]
  - Incorrect product administration duration [Unknown]
  - Premature baby [Unknown]
  - Jaundice [Recovered/Resolved]
  - Foetal arrhythmia [Recovered/Resolved]
  - Drug withdrawal syndrome neonatal [Recovered/Resolved]
  - Low birth weight baby [Unknown]
  - Accidental overdose [Unknown]
  - Drug dependence [Recovered/Resolved]
